FAERS Safety Report 6208254-6 (Version None)
Quarter: 2009Q2

REPORT INFORMATION
  Report Type: 
  Country: None (occurrence: None)
  Receive Date: 20090529
  Receipt Date: 20090522
  Transmission Date: 20091009
  Serious: Yes (Other)
  Sender: FDA-Public Use
  Company Number: US-ASTRAZENECA-2009UW13246

PATIENT
  Sex: Male

DRUGS (3)
  1. CRESTOR [Suspect]
     Route: 048
  2. LISINOPRIL [Concomitant]
  3. BYETTA [Concomitant]

REACTIONS (4)
  - HEPATIC ENZYME INCREASED [None]
  - MYALGIA [None]
  - PROTEINURIA [None]
  - RHABDOMYOLYSIS [None]
